FAERS Safety Report 6920238-9 (Version None)
Quarter: 2010Q3

REPORT INFORMATION
  Report Type: 
  Country: None (occurrence: None)
  Receive Date: 20100809
  Receipt Date: 20100727
  Transmission Date: 20110219
  Serious: Yes (Hospitalization)
  Sender: FDA-Public Use
  Company Number: 10-000456

PATIENT
  Age: 83 Year
  Sex: Female
  Weight: 57.1 kg

DRUGS (14)
  1. ESTRACE [Suspect]
     Indication: VAGINAL HAEMORRHAGE
     Dosage: 1GRAM, MONDAY, WEDNESDAY, FRIDAY, VAGINAL
     Route: 067
     Dates: start: 20040101, end: 20100405
  2. ESTRACE [Suspect]
     Indication: VAGINITIS BACTERIAL
     Dosage: 1GRAM, MONDAY, WEDNESDAY, FRIDAY, VAGINAL
     Route: 067
     Dates: start: 20040101, end: 20100405
  3. ESTRACE [Suspect]
     Indication: VULVOVAGINAL PAIN
     Dosage: 1GRAM, MONDAY, WEDNESDAY, FRIDAY, VAGINAL
     Route: 067
     Dates: start: 20040101, end: 20100405
  4. CALCIUM (CALCIUM GLUBIONATE) [Concomitant]
  5. LOVASTATIN [Concomitant]
  6. OMEPRAZOLE [Concomitant]
  7. FOSAMAX [Concomitant]
  8. COUMADIN (COUMARIN) [Concomitant]
  9. METOPROLOL TARTRATE [Concomitant]
  10. ASPIRIN [Concomitant]
  11. VITAMIN D (EROGCALCIFEROL) CAPSULE [Concomitant]
  12. XALATAN [Concomitant]
  13. RESTASIS (CICLOSPORIN) [Concomitant]
  14. PRILOSEC (OMEPRAZOLE) [Concomitant]

REACTIONS (7)
  - ATRIOVENTRICULAR BLOCK [None]
  - CYSTITIS [None]
  - HEAD INJURY [None]
  - LOSS OF CONSCIOUSNESS [None]
  - VAGINAL HAEMORRHAGE [None]
  - VAGINITIS BACTERIAL [None]
  - VULVOVAGINAL MYCOTIC INFECTION [None]
